FAERS Safety Report 7496965-4 (Version None)
Quarter: 2011Q2

REPORT INFORMATION
  Report Type: 
  Country: None (occurrence: None)
  Receive Date: 20110523
  Receipt Date: 20110504
  Transmission Date: 20111010
  Serious: No
  Sender: FDA-Public Use
  Company Number: US-B.I. PHARMACEUTICALS,INC./RIDGEFIELD-2011-BP-09509BP

PATIENT
  Age: 62 Year
  Sex: Male
  Weight: 133.81 kg

DRUGS (8)
  1. DIGOXIN [Concomitant]
     Dosage: 0.125 MG
  2. LOPRESSOR [Concomitant]
     Dosage: 100 MG
  3. SKELAXIN [Concomitant]
  4. CLONIDINE [Concomitant]
     Dosage: 0.6 MG
  5. PRADAXA [Suspect]
     Route: 048
     Dates: start: 20110101
  6. LIPITOR [Concomitant]
     Dosage: 10 MG
  7. DILTIAZEM CD [Concomitant]
     Dosage: 240 MG
  8. ALTACE [Concomitant]
     Dosage: 20 MG

REACTIONS (1)
  - ACTIVATED PARTIAL THROMBOPLASTIN TIME SHORTENED [None]
